FAERS Safety Report 8659652 (Version 2)
Quarter: 2012Q4

REPORT INFORMATION
  Report Type: Report from Study
  Country: US (occurrence: US)
  Receive Date: 20120711
  Receipt Date: 20121019
  Transmission Date: 20130627
  Serious: No
  Sender: FDA-Public Use
  Company Number: US-US-EMD SERONO, INC.-7145060

PATIENT
  Age: 42 None
  Sex: Female

DRUGS (13)
  1. REBIF [Suspect]
     Indication: MULTIPLE SCLEROSIS
     Route: 058
     Dates: start: 20111229
  2. TOPAMAX [Concomitant]
     Indication: MIGRAINE
  3. SAVELLA [Concomitant]
     Indication: FIBROMYALGIA
  4. AMITRIPTYLINE [Concomitant]
     Indication: INSOMNIA
  5. FLEXERIL [Concomitant]
     Indication: MUSCLE SPASMS
  6. ZANAFLEX [Concomitant]
     Indication: MUSCLE SPASMS
  7. CYMBALTA [Concomitant]
     Indication: DEPRESSION
  8. NOVOLOG [Concomitant]
     Indication: TYPE 1 DIABETES MELLITUS
  9. LANTUS [Concomitant]
     Indication: TYPE 1 DIABETES MELLITUS
  10. GLIPIZIDE [Concomitant]
     Indication: TYPE 1 DIABETES MELLITUS
  11. PROAIR [Concomitant]
     Indication: ASTHMA
  12. SINGULAIR [Concomitant]
     Indication: ASTHMA
  13. QVAR [Concomitant]
     Indication: ASTHMA

REACTIONS (4)
  - Uterine disorder [Not Recovered/Not Resolved]
  - Menorrhagia [Not Recovered/Not Resolved]
  - Multiple sclerosis [Not Recovered/Not Resolved]
  - Anaemia [Not Recovered/Not Resolved]
